FAERS Safety Report 18159431 (Version 4)
Quarter: 2021Q3

REPORT INFORMATION
  Report Type: Report from Study
  Country: US (occurrence: US)
  Receive Date: 20200818
  Receipt Date: 20210817
  Transmission Date: 20211014
  Serious: Yes (Hospitalization)
  Sender: FDA-Public Use
  Company Number: NVSC2020US227385

PATIENT
  Sex: Male

DRUGS (1)
  1. ENTRESTO [Suspect]
     Active Substance: SACUBITRIL\VALSARTAN
     Indication: PRODUCT USED FOR UNKNOWN INDICATION
     Dosage: 200 MG, (97/103 MG) BID (STARTED 1 MONTH AGO)
     Route: 048

REACTIONS (6)
  - Dizziness [Unknown]
  - Balance disorder [Recovering/Resolving]
  - Nasal congestion [Unknown]
  - Decreased appetite [Unknown]
  - Fluid retention [Unknown]
  - Weight decreased [Unknown]
